FAERS Safety Report 8809839 (Version 3)
Quarter: 2012Q4

REPORT INFORMATION
  Report Type: 
  Country: US (occurrence: US)
  Receive Date: 20120926
  Receipt Date: 20121001
  Transmission Date: 20130627
  Serious: Yes (Hospitalization)
  Sender: FDA-Public Use
  Company Number: US-ELI_LILLY_AND_COMPANY-US201209004761

PATIENT
  Age: 69 Year
  Sex: Female

DRUGS (6)
  1. FORTEO [Suspect]
     Indication: OSTEOPOROSIS
     Dosage: 20 ug, qd
     Dates: start: 20120215, end: 20120312
  2. FORTEO [Suspect]
     Dosage: 20 ug, qd
     Dates: start: 20120917
  3. SYNTHROID [Concomitant]
     Dosage: UNK
  4. VALIUM [Concomitant]
     Dosage: UNK
  5. COUMADIN [Concomitant]
     Dosage: UNK
  6. VITAMINS [Concomitant]
     Dosage: UNK

REACTIONS (15)
  - Pyrexia [Unknown]
  - Rotator cuff syndrome [Unknown]
  - Pain [Unknown]
  - Nausea [Recovering/Resolving]
  - Multiple sclerosis [Not Recovered/Not Resolved]
  - Paraesthesia [Not Recovered/Not Resolved]
  - Muscle spasms [Unknown]
  - Dizziness [Unknown]
  - Malaise [Unknown]
  - Fear [Unknown]
  - Off label use [Unknown]
  - Gait disturbance [Unknown]
  - Crying [Unknown]
  - Balance disorder [Not Recovered/Not Resolved]
  - Headache [Unknown]
